FAERS Safety Report 8855357 (Version 1)
Quarter: 2012Q4

REPORT INFORMATION
  Report Type: 
  Country: US (occurrence: US)
  Receive Date: 20121023
  Receipt Date: 20121023
  Transmission Date: 20130627
  Serious: No
  Sender: FDA-Public Use
  Company Number: US-AMGEN-USASP2012017433

PATIENT
  Sex: Female

DRUGS (12)
  1. ENBREL [Suspect]
     Indication: PSORIASIS
     Dosage: 25 mg, 2 times/wk
     Route: 058
  2. ULORIC [Concomitant]
     Dosage: 40 mg, UNK
  3. COLCRYS [Concomitant]
     Dosage: 0.6 mg, UNK
  4. JANUVIA [Concomitant]
     Dosage: 25 mg, UNK
  5. GLIMEPIRIDE [Concomitant]
     Dosage: 2 mg, UNK
  6. LOVASTATIN [Concomitant]
     Dosage: 20 mg, UNK
  7. SUPER B COMPLEX                    /01995301/ [Concomitant]
     Dosage: UNK
  8. TOPROL [Concomitant]
     Dosage: 100 mg, UNK
  9. CYCLOSPORINE [Concomitant]
     Dosage: 100 mg, UNK
  10. MULTIVITAMIN                       /07504101/ [Concomitant]
     Dosage: UNK
  11. IRON [Concomitant]
     Dosage: 325 mg, UNK
  12. SERTRALINE [Concomitant]
     Dosage: 25 mg, UNK

REACTIONS (3)
  - Pain [Unknown]
  - Therapeutic response decreased [Unknown]
  - Psoriasis [Unknown]
